FAERS Safety Report 10172194 (Version 1)
Quarter: 2014Q2

REPORT INFORMATION
  Report Type: Spontaneous
  Country: SN (occurrence: SN)
  Receive Date: 20140515
  Receipt Date: 20140515
  Transmission Date: 20141212
  Serious: Yes (Death, Hospitalization, Other)
  Sender: FDA-Public Use
  Company Number: PHHY2014SN056100

PATIENT
  Age: 42 Year
  Sex: Female

DRUGS (3)
  1. GLIVEC [Suspect]
     Indication: CHRONIC MYELOID LEUKAEMIA
     Dosage: 200 MG, BID
  2. GLIVEC [Suspect]
     Dosage: 600 MG, PER DAY
  3. CEFTRIAXONE [Concomitant]
     Indication: ANTIBIOTIC THERAPY
     Dosage: 2 G, DAILY

REACTIONS (15)
  - Sepsis [Fatal]
  - Bacterial infection [Fatal]
  - Hepatomegaly [Unknown]
  - Splenomegaly [Unknown]
  - Hypernatraemia [Recovered/Resolved]
  - Septic shock [Not Recovered/Not Resolved]
  - Hypokalaemia [Recovered/Resolved]
  - Anaemia [Unknown]
  - Thrombocytosis [Recovered/Resolved]
  - Leukocytosis [Recovered/Resolved]
  - Infection [Unknown]
  - Body temperature increased [Unknown]
  - Blast crisis in myelogenous leukaemia [Unknown]
  - Blast cells present [Unknown]
  - Exposure during pregnancy [Unknown]
